FAERS Safety Report 9670798 (Version 6)
Quarter: 2017Q4

REPORT INFORMATION
  Report Type: Report from Study
  Country: RU (occurrence: RU)
  Receive Date: 20131106
  Receipt Date: 20171013
  Transmission Date: 20180321
  Serious: Yes (Death)
  Sender: FDA-Public Use
  Company Number: RU-ROCHE-1299570

PATIENT
  Age: 13 Year
  Sex: Female

DRUGS (1)
  1. TOCILIZUMAB. [Suspect]
     Active Substance: TOCILIZUMAB
     Indication: STILL^S DISEASE
     Dosage: DOSE: INTRAVENOUS 12MG/KG IN CHILDREN WITH WEIGHT LESS THAN 30KG, 8 MG/KG IN CHILDREN WITH WEIGHT 30
     Route: 042

REACTIONS (1)
  - Histiocytosis haematophagic [Fatal]
